FAERS Safety Report 16064344 (Version 2)
Quarter: 2019Q2

REPORT INFORMATION
  Report Type: Spontaneous
  Country: CN (occurrence: CN)
  Receive Date: 20190312
  Receipt Date: 20190401
  Transmission Date: 20190711
  Serious: Yes (Other)
  Sender: FDA-Public Use
  Company Number: CN-ELI_LILLY_AND_COMPANY-CN201903003452

PATIENT
  Sex: Female
  Weight: 46 kg

DRUGS (1)
  1. INSULIN HUMAN [Suspect]
     Active Substance: INSULIN HUMAN
     Indication: DIABETES MELLITUS
     Dosage: 4 IU, TID
     Route: 058
     Dates: start: 20190217, end: 20190221

REACTIONS (6)
  - Skin induration [Recovering/Resolving]
  - Skin infection [Recovering/Resolving]
  - Body temperature increased [Recovering/Resolving]
  - Rash pruritic [Recovering/Resolving]
  - Rash erythematous [Recovering/Resolving]
  - Skin mass [Recovering/Resolving]

NARRATIVE: CASE EVENT DATE: 20190222
